FAERS Safety Report 14807872 (Version 1)
Quarter: 2018Q2

REPORT INFORMATION
  Report Type: Spontaneous
  Country: TW (occurrence: TW)
  Receive Date: 20180425
  Receipt Date: 20180425
  Transmission Date: 20180711
  Serious: Yes (Death, Other)
  Sender: FDA-Public Use
  Company Number: TW-009507513-1801TWN005700

PATIENT
  Age: 67 Year
  Sex: Male
  Weight: 70.8 kg

DRUGS (3)
  1. PACLITAXEL. [Concomitant]
     Active Substance: PACLITAXEL
     Indication: NEOPLASM MALIGNANT
     Dosage: 230 (UNITS NOT PROVIDED)
     Route: 042
     Dates: start: 20170813, end: 20170813
  2. PEMBROLIZUMAB. [Suspect]
     Active Substance: PEMBROLIZUMAB
     Indication: NEOPLASM MALIGNANT
  3. PEMBROLIZUMAB. [Suspect]
     Active Substance: PEMBROLIZUMAB
     Indication: SQUAMOUS CELL CARCINOMA OF HEAD AND NECK
     Dosage: 100 MG, EVERY 3 WEEKS
     Route: 042
     Dates: start: 20160428, end: 20170813

REACTIONS (4)
  - Pneumonia [Not Recovered/Not Resolved]
  - Disease progression [Fatal]
  - Hypothyroidism [Not Recovered/Not Resolved]
  - Pneumonitis [Not Recovered/Not Resolved]

NARRATIVE: CASE EVENT DATE: 2016
